FAERS Safety Report 14052619 (Version 1)
Quarter: 2017Q4

REPORT INFORMATION
  Report Type: Spontaneous
  Country: US (occurrence: US)
  Receive Date: 20171005
  Receipt Date: 20171005
  Transmission Date: 20180321
  Serious: No
  Sender: FDA-Public Use
  Company Number: US-JNJFOC-20160614842

PATIENT
  Sex: Female

DRUGS (1)
  1. DITROPAN XL [Suspect]
     Active Substance: OXYBUTYNIN CHLORIDE
     Indication: PAIN
     Route: 065
     Dates: start: 20151221

REACTIONS (1)
  - Drug ineffective [Unknown]
